FAERS Safety Report 5392500-5 (Version None)
Quarter: 2007Q3

REPORT INFORMATION
  Report Type: 
  Country: None (occurrence: None)
  Receive Date: 20070720
  Receipt Date: 20070711
  Transmission Date: 20080115
  Serious: Yes (Death)
  Sender: FDA-Public Use
  Company Number: SK-ELI_LILLY_AND_COMPANY-SK200706003676

PATIENT
  Age: 64 Year
  Sex: Female
  Weight: 83 kg

DRUGS (10)
  1. HUMULIN R [Suspect]
     Indication: TYPE 2 DIABETES MELLITUS
     Dosage: 24 IU, EACH MORNING
     Route: 058
     Dates: start: 20050101
  2. HUMULIN R [Suspect]
     Dosage: 12 IU, EACH NOON
     Route: 058
  3. HUMULIN R [Suspect]
     Dosage: 12 IU, EACH EVENING
     Route: 058
  4. HUMULIN R [Suspect]
     Dates: start: 20050101
  5. HUMULIN N [Suspect]
     Indication: TYPE 2 DIABETES MELLITUS
     Dosage: 12 IU, EACH MORNING
     Route: 058
  6. HUMULIN N [Suspect]
     Dosage: 20 IU, EACH EVENING
     Route: 058
  7. HUMULIN N [Suspect]
     Dates: start: 20050101
  8. TRAMADOL HCL [Concomitant]
     Dosage: 300 MG, DAILY (1/D)
     Route: 048
  9. FUROSEMIDE [Concomitant]
     Dosage: 250 MG, DAILY (1/D)
     Route: 048
  10. ORAL ANTIDIABETICS [Concomitant]
     Route: 048

REACTIONS (1)
  - MYOCARDIAL INFARCTION [None]
